FAERS Safety Report 6444598-0 (Version None)
Quarter: 2009Q4

REPORT INFORMATION
  Report Type: 
  Country: None (occurrence: None)
  Receive Date: 20091117
  Receipt Date: 20091117
  Transmission Date: 20100525
  Serious: Yes (Life-Threatening, Hospitalization, Other)
  Sender: FDA-Public Use
  Company Number: None

PATIENT
  Age: 30 Year
  Sex: Female
  Weight: 124.7392 kg

DRUGS (3)
  1. YAZ [Suspect]
     Indication: DYSMENORRHOEA
     Dosage: 1 PILL DAILY PO
     Route: 048
     Dates: start: 20090912, end: 20091111
  2. YAZ [Suspect]
     Indication: ENDOMETRIOSIS
     Dosage: 1 PILL DAILY PO
     Route: 048
     Dates: start: 20090912, end: 20091111
  3. YAZ [Suspect]
     Indication: MOOD SWINGS
     Dosage: 1 PILL DAILY PO
     Route: 048
     Dates: start: 20090912, end: 20091111

REACTIONS (4)
  - COR PULMONALE [None]
  - FACTOR V DEFICIENCY [None]
  - PLEURISY [None]
  - PULMONARY EMBOLISM [None]
